FAERS Safety Report 22225059 (Version 3)
Quarter: 2023Q2

REPORT INFORMATION
  Report Type: Spontaneous
  Country: US (occurrence: US)
  Receive Date: 20230418
  Receipt Date: 20230601
  Transmission Date: 20230721
  Serious: Yes (Death)
  Sender: FDA-Public Use
  Company Number: US-Calliditas-2023CAL00350

PATIENT
  Age: 82 Year
  Sex: Male

DRUGS (1)
  1. TARPEYO [Suspect]
     Active Substance: BUDESONIDE
     Indication: IgA nephropathy
     Dosage: 4MG ONCE DAILY
     Route: 048
     Dates: start: 20221224, end: 20230303

REACTIONS (2)
  - Haemorrhagic stroke [Fatal]
  - Underdose [Recovered/Resolved]

NARRATIVE: CASE EVENT DATE: 20230302
